FAERS Safety Report 6152089-X (Version None)
Quarter: 2009Q2

REPORT INFORMATION
  Report Type: 
  Country: None (occurrence: None)
  Receive Date: 20090410
  Receipt Date: 20090402
  Transmission Date: 20091009
  Serious: Yes (Other)
  Sender: FDA-Public Use
  Company Number: PHEH2009US03493

PATIENT
  Age: 80 Year
  Sex: Female
  Weight: 71.202 kg

DRUGS (4)
  1. FEMARA [Suspect]
     Indication: BREAST CANCER
     Dosage: 2.5 MG, QD
     Route: 048
  2. NASACORT [Concomitant]
  3. ATENOLOL [Concomitant]
  4. PREVACID [Concomitant]

REACTIONS (5)
  - BLOOD THYROID STIMULATING HORMONE INCREASED [None]
  - CONSTIPATION [None]
  - FATIGUE [None]
  - HEADACHE [None]
  - WEIGHT INCREASED [None]
